FAERS Safety Report 10404478 (Version 1)
Quarter: 2014Q1

REPORT INFORMATION
  Report Type: Spontaneous
  Country: US (occurrence: None)
  Receive Date: 20140306
  Receipt Date: 20140306
  Transmission Date: 20141002
  Serious: Yes (Other)
  Sender: FDA-Public Use
  Company Number: 163-21880-12050881

PATIENT
  Age: 79 Year
  Sex: Female
  Weight: 56.7 kg

DRUGS (12)
  1. REVLIMID (LENALIDOMIDE) (15 MILLIGRAM, CAPSULES) [Suspect]
     Indication: PLASMA CELL MYELOMA
     Dosage: 15 MG, 21 IN 21 D, PO
     Route: 048
     Dates: start: 20090726
  2. CALCIUM + D (OS-CAL) [Concomitant]
  3. DEXAMETHASONE (DEXAMETHASONE) [Concomitant]
  4. FISH OIL (FISH OIL) [Concomitant]
  5. MULTIVITAMIN (MULTIVITAMINS) [Concomitant]
  6. OMEPRAZOLE (OMEPRAZOLE) (CAPSULES) [Concomitant]
  7. PLAVIX (CLOPIDOGREL SULFATE) [Concomitant]
  8. VITAMIN C (ASCORBIC ACID) [Concomitant]
  9. VITAMIN D3 (COLECALCIFEROL) [Concomitant]
  10. WELCHOL (COLESEVELAM HYDROCHLORIDE) (TABLETS) [Concomitant]
  11. ZOMETA (ZOLEDRONIC ACID) [Concomitant]
  12. TOPROL XL (METOPROLOL SUCCINATE) (TABLETS) [Concomitant]

REACTIONS (3)
  - Asthenia [None]
  - Drug dose omission [None]
  - Muscular weakness [None]
